FAERS Safety Report 11596365 (Version 8)
Quarter: 2019Q2

REPORT INFORMATION
  Report Type: Report from Study
  Country: US (occurrence: US)
  Receive Date: 20151006
  Receipt Date: 20190604
  Transmission Date: 20190711
  Serious: Yes (Hospitalization)
  Sender: FDA-Public Use
  Company Number: US-SA-2015SA153149

PATIENT
  Age: 51 Year
  Sex: Male

DRUGS (4)
  1. IMIGLUCERASE [Suspect]
     Active Substance: IMIGLUCERASE
     Dosage: 7200 U, QOW
     Route: 041
  2. IMIGLUCERASE [Suspect]
     Active Substance: IMIGLUCERASE
     Dosage: 7200 DF, QOW
     Route: 041
     Dates: start: 20130204, end: 201509
  3. IMIGLUCERASE [Suspect]
     Active Substance: IMIGLUCERASE
     Indication: GAUCHER^S DISEASE
     Dosage: 7200(UNITS: UNK) Q2
     Route: 041
     Dates: start: 19990731
  4. IMIGLUCERASE [Suspect]
     Active Substance: IMIGLUCERASE
     Dosage: 7200 DF, QOW
     Route: 041
     Dates: start: 20150928

REACTIONS (7)
  - Gallbladder disorder [Unknown]
  - Back pain [Unknown]
  - Dehydration [Recovering/Resolving]
  - Product dose omission [Unknown]
  - Poor venous access [Recovering/Resolving]
  - Malaise [Unknown]
  - Tremor [Unknown]

NARRATIVE: CASE EVENT DATE: 20170119
